FAERS Safety Report 23465434 (Version 1)
Quarter: 2024Q1

REPORT INFORMATION
  Report Type: Spontaneous
  Country: SK (occurrence: SK)
  Receive Date: 20240201
  Receipt Date: 20240201
  Transmission Date: 20240409
  Serious: Yes (Hospitalization)
  Sender: FDA-Public Use
  Company Number: None

PATIENT
  Age: 32 Year
  Sex: Female
  Weight: 64 kg

DRUGS (4)
  1. LORATADINE\PSEUDOEPHEDRINE SULFATE [Suspect]
     Active Substance: LORATADINE\PSEUDOEPHEDRINE SULFATE
     Indication: COVID-19 treatment
     Dosage: 5 MG, BID
     Dates: start: 20231211, end: 20231217
  2. BACITRACIN\NEOMYCIN SULFATE [Suspect]
     Active Substance: BACITRACIN\NEOMYCIN SULFATE
     Indication: COVID-19 treatment
     Dates: start: 20231211, end: 20231217
  3. ACETAMINOPHEN [Suspect]
     Active Substance: ACETAMINOPHEN
     Indication: COVID-19 treatment
     Dates: start: 20231211, end: 20231217
  4. ISOPRINOSINE [Suspect]
     Active Substance: INOSINE PRANOBEX
     Indication: COVID-19 treatment
     Dates: start: 20231211, end: 20231217

REACTIONS (2)
  - Drug eruption [Unknown]
  - Burning sensation [Unknown]

NARRATIVE: CASE EVENT DATE: 20231218
